FAERS Safety Report 25779046 (Version 3)
Quarter: 2025Q4

REPORT INFORMATION
  Report Type: Spontaneous
  Country: EU (occurrence: EU)
  Receive Date: 20250909
  Receipt Date: 20251211
  Transmission Date: 20260118
  Serious: Yes (Life-Threatening, Other)
  Sender: PFIZER
  Company Number: EU-AUROBINDO-AUR-APL-2025-044613

PATIENT
  Age: 68 Year
  Sex: Female
  Weight: 57 kg

DRUGS (5)
  1. CARBOPLATIN [Suspect]
     Active Substance: CARBOPLATIN
     Indication: Squamous cell carcinoma of lung
     Dosage: UNK, EVERY 3 WEEKS (6 AUC, EVERY 21 DAYS)
     Route: 042
     Dates: start: 20250811, end: 20250811
  2. PACLITAXEL [Suspect]
     Active Substance: PACLITAXEL
     Indication: Squamous cell carcinoma of lung
     Dosage: 283.5 MG, EVERY 3 WEEKS (PER DAY EVERY 21 DAYS)
     Route: 042
     Dates: start: 20250811, end: 20250811
  3. NIVOLUMAB [Suspect]
     Active Substance: NIVOLUMAB
     Indication: Squamous cell carcinoma of lung
     Dosage: 360 MG
     Route: 042
     Dates: start: 20250811, end: 20250811
  4. DEXAMETHASONE [Concomitant]
     Active Substance: DEXAMETHASONE
     Indication: Allergy alert test
     Dosage: 20 MG
     Route: 065
     Dates: start: 20250811
  5. POLARAMINE [Concomitant]
     Active Substance: DEXCHLORPHENIRAMINE MALEATE
     Indication: Allergy alert test
     Dosage: 5 MG
     Route: 065
     Dates: start: 20250811

REACTIONS (4)
  - Type I hypersensitivity [Recovered/Resolved]
  - Headache [Recovered/Resolved]
  - Off label use [Unknown]
  - Product use issue [Unknown]

NARRATIVE: CASE EVENT DATE: 20250811
